FAERS Safety Report 6698614-1 (Version None)
Quarter: 2010Q2

REPORT INFORMATION
  Report Type: 
  Country: None (occurrence: None)
  Receive Date: 20100427
  Receipt Date: 20100416
  Transmission Date: 20101027
  Serious: Yes (Other)
  Sender: FDA-Public Use
  Company Number: US-PFIZER INC-2010004383

PATIENT
  Sex: Male
  Weight: 121.1 kg

DRUGS (6)
  1. SUTENT [Suspect]
     Indication: METASTATIC RENAL CELL CARCINOMA
     Dosage: 50 MG, 1X/DAY, X 28 DAYS Q 42 DAYS
     Route: 048
     Dates: start: 20081031
  2. SUTENT [Suspect]
     Indication: RENAL CANCER
     Dosage: 37.5 MG, 1X/DAY, X 28 DAYS Q 42 DAYS
     Dates: start: 20081031, end: 20081231
  3. SUTENT [Suspect]
     Dosage: 50 MG, DAILY
     Route: 048
     Dates: start: 20100124, end: 20100401
  4. INSULIN [Concomitant]
     Indication: DIABETES MELLITUS
     Dosage: UNK
  5. BACLOFEN [Concomitant]
     Indication: PAIN
     Dosage: UNK,AS NEEDED
  6. NEURONTIN [Concomitant]
     Dosage: 600 MG, 2X/DAY

REACTIONS (8)
  - BLOOD GLUCOSE DECREASED [None]
  - CLAVICLE FRACTURE [None]
  - CONFUSIONAL STATE [None]
  - DEPRESSED MOOD [None]
  - HALLUCINATION [None]
  - IMPAIRED HEALING [None]
  - SKIN ULCER [None]
  - SUICIDE ATTEMPT [None]
